FAERS Safety Report 14456434 (Version 2)
Quarter: 2018Q2

REPORT INFORMATION
  Report Type: Spontaneous
  Country: US (occurrence: US)
  Receive Date: 20180130
  Receipt Date: 20180422
  Transmission Date: 20180711
  Serious: Yes (Hospitalization, Other)
  Sender: FDA-Public Use
  Company Number: US-APOTEX-2018AP006182

PATIENT
  Age: 4 Month
  Sex: Male

DRUGS (2)
  1. FLECAINIDE [Suspect]
     Active Substance: FLECAINIDE
     Indication: ATRIAL TACHYCARDIA
     Dosage: 6 MG/KG, QD
     Route: 065
  2. PROPRANOLOL [Concomitant]
     Active Substance: PROPRANOLOL HYDROCHLORIDE
     Indication: ATRIAL TACHYCARDIA
     Dosage: 3 MG/KG, QD
     Route: 065

REACTIONS (8)
  - Toxicity to various agents [Recovering/Resolving]
  - Lethargy [Recovering/Resolving]
  - Defect conduction intraventricular [Recovering/Resolving]
  - Atrioventricular block first degree [Recovering/Resolving]
  - Supraventricular extrasystoles [Recovering/Resolving]
  - Decreased activity [Recovering/Resolving]
  - Sinus bradycardia [Recovering/Resolving]
  - Bundle branch block [Recovering/Resolving]
